FAERS Safety Report 9393476 (Version 1)
Quarter: 2013Q3

REPORT INFORMATION
  Report Type: Spontaneous
  Country: IN (occurrence: IN)
  Receive Date: 20130710
  Receipt Date: 20130710
  Transmission Date: 20140515
  Serious: Yes (Congenital Anomaly)
  Sender: FDA-Public Use
  Company Number: PHHY2013IN069974

PATIENT
  Age: 14 Month
  Sex: Male
  Weight: 6.5 kg

DRUGS (1)
  1. VALPROIC ACID [Suspect]
     Dosage: 1200 MG, DAILY (MATERNAL DOSE)
     Route: 064

REACTIONS (20)
  - Foetal anticonvulsant syndrome [Unknown]
  - Underweight [Unknown]
  - Dysmorphism [Unknown]
  - Low set ears [Unknown]
  - Nose deformity [Unknown]
  - Lip disorder [Unknown]
  - Congenital oral malformation [Unknown]
  - Foot deformity [Unknown]
  - Hand deformity [Unknown]
  - Congenital cutis laxa [Unknown]
  - Hypospadias [Unknown]
  - Developmental delay [Unknown]
  - Dysstasia [Unknown]
  - Speech disorder [Unknown]
  - Spinal disorder [Unknown]
  - Cough [Unknown]
  - Pyrexia [Unknown]
  - Low birth weight baby [Unknown]
  - Clubbing [Unknown]
  - Foetal exposure during pregnancy [Unknown]
